FAERS Safety Report 20330449 (Version 2)
Quarter: 2022Q1

REPORT INFORMATION
  Report Type: Spontaneous
  Country: US (occurrence: US)
  Receive Date: 20220113
  Receipt Date: 20220119
  Transmission Date: 20220423
  Serious: Yes (Other)
  Sender: FDA-Public Use
  Company Number: US-HETERO-HET2022US00028

PATIENT

DRUGS (2)
  1. LOSARTAN [Suspect]
     Active Substance: LOSARTAN
     Indication: Hypertension
     Dosage: 25 MG, ONCE IN A DAY
     Route: 065
     Dates: start: 202105, end: 202107
  2. NAPROXEN SODIUM [Concomitant]
     Active Substance: NAPROXEN SODIUM
     Indication: Pain
     Dosage: UNK UNK, QD
     Route: 065

REACTIONS (3)
  - Hyperkalaemia [Unknown]
  - Gastrointestinal disorder [Not Recovered/Not Resolved]
  - Abdominal distension [Recovering/Resolving]
